FAERS Safety Report 12358220 (Version 1)
Quarter: 2016Q2

REPORT INFORMATION
  Report Type: Spontaneous
  Country: US (occurrence: None)
  Receive Date: 20160511
  Receipt Date: 20160511
  Transmission Date: 20160815
  Serious: No
  Sender: FDA-Public Use
  Company Number: None

PATIENT
  Age: 40 Year
  Sex: Female
  Weight: 70.31 kg

DRUGS (1)
  1. LIDOCAINE PATCH [Suspect]
     Active Substance: LIDOCAINE
     Indication: ANALGESIC THERAPY
     Dosage: 30 PATCH(ES) ONCE A DAY APPLIED AS MEDICATED PATCH TO SKIN
     Route: 061
     Dates: start: 20160304

REACTIONS (2)
  - Product quality issue [None]
  - Product adhesion issue [None]
